FAERS Safety Report 7306421-1 (Version None)
Quarter: 2011Q1

REPORT INFORMATION
  Report Type: 
  Country: None (occurrence: None)
  Receive Date: 20110210
  Receipt Date: 20110128
  Transmission Date: 20110831
  Serious: Yes (Hospitalization)
  Sender: FDA-Public Use
  Company Number: 2011S1000121

PATIENT
  Age: 76 Year
  Sex: Male

DRUGS (4)
  1. LIVALO KOWA (PITAVASTATTN) [Suspect]
     Indication: HYPERCHOLESTEROLAEMIA
     Dosage: 1 MG; QOD; PO
     Route: 048
     Dates: start: 20101001, end: 20110128
  2. FAMOTIDINE [Concomitant]
  3. URINORM [Concomitant]
  4. NU-LOTAN [Concomitant]

REACTIONS (1)
  - RHABDOMYOLYSIS [None]
